FAERS Safety Report 15569729 (Version 1)
Quarter: 2018Q4

REPORT INFORMATION
  Report Type: Spontaneous
  Country: US (occurrence: US)
  Receive Date: 20181031
  Receipt Date: 20181031
  Transmission Date: 20190205
  Serious: No
  Sender: FDA-Public Use
  Company Number: US-PFIZER INC-2017363026

PATIENT
  Age: 14 Year
  Sex: Male
  Weight: 55 kg

DRUGS (12)
  1. GENOTROPIN [Suspect]
     Active Substance: SOMATROPIN
     Dosage: 2.8 MG, DAILY
     Route: 058
     Dates: start: 20170522
  2. GUANFACINE. [Concomitant]
     Active Substance: GUANFACINE
     Indication: ANXIETY
  3. ENHANSID [Concomitant]
     Indication: ATTENTION DEFICIT/HYPERACTIVITY DISORDER
     Dosage: 600 MG, DAILY
  4. MAGNESIUM [Concomitant]
     Active Substance: MAGNESIUM
     Indication: SLEEP DISORDER
     Dosage: 250 MG, DAILY AT BEDTIME
  5. GENOTROPIN [Suspect]
     Active Substance: SOMATROPIN
     Indication: GROWTH HORMONE DEFICIENCY
     Dosage: 2.2 MG INJECTION, DAILY
     Route: 058
     Dates: start: 201707
  6. METHYLPHENIDATE. [Concomitant]
     Active Substance: METHYLPHENIDATE
     Indication: ATTENTION DEFICIT/HYPERACTIVITY DISORDER
     Dosage: 36MG IN THE MORNING AND 5MG IN THE AFTERNOON, 2X/DAY
  7. MAGNESIUM [Concomitant]
     Active Substance: MAGNESIUM
     Indication: GASTROINTESTINAL DISORDER
  8. VIVARIN [Concomitant]
     Active Substance: CAFFEINE
     Indication: ATTENTION DEFICIT/HYPERACTIVITY DISORDER
     Dosage: UNK (UNSURE OF STRENGTH)
  9. VITAMIN D /00107901/ [Concomitant]
     Active Substance: ERGOCALCIFEROL
     Dosage: 2000 IU, DURING THE FALL AND WINTER
  10. MELATONIN [Concomitant]
     Active Substance: MELATONIN
     Dosage: UNK UNK, AS NEEDED (UP TO 9MG AS NEEDED)
  11. GENOTROPIN [Suspect]
     Active Substance: SOMATROPIN
     Indication: HYPOPITUITARISM
     Dosage: 2.8 MG, UNK
     Dates: start: 201707
  12. GUANFACINE. [Concomitant]
     Active Substance: GUANFACINE
     Indication: AUTISM SPECTRUM DISORDER
     Dosage: 4 MG, DAILY

REACTIONS (6)
  - Incorrect dose administered [Unknown]
  - Wrong technique in product usage process [Unknown]
  - Device issue [Unknown]
  - Underdose [Unknown]
  - Product dose omission [Unknown]
  - Precocious puberty [Unknown]

NARRATIVE: CASE EVENT DATE: 201708
